FAERS Safety Report 26001936 (Version 1)
Quarter: 2025Q4

REPORT INFORMATION
  Report Type: Spontaneous
  Country: EU (occurrence: EU)
  Receive Date: 20251105
  Receipt Date: 20251105
  Transmission Date: 20260118
  Serious: Yes (Other)
  Sender: MYLAN
  Company Number: None

PATIENT
  Age: 17 Day
  Sex: Male
  Weight: 4.24 kg

DRUGS (20)
  1. ACETAMINOPHEN [Suspect]
     Active Substance: ACETAMINOPHEN
     Indication: Meningitis enteroviral
     Dosage: 1310 MILLIGRAM, QD
     Dates: start: 20250809, end: 20250809
  2. ACETAMINOPHEN [Suspect]
     Active Substance: ACETAMINOPHEN
     Dosage: 1310 MILLIGRAM, QD
     Route: 048
     Dates: start: 20250809, end: 20250809
  3. ACETAMINOPHEN [Suspect]
     Active Substance: ACETAMINOPHEN
     Dosage: 1310 MILLIGRAM, QD
     Route: 048
     Dates: start: 20250809, end: 20250809
  4. ACETAMINOPHEN [Suspect]
     Active Substance: ACETAMINOPHEN
     Dosage: 1310 MILLIGRAM, QD
     Dates: start: 20250809, end: 20250809
  5. AMIKACIN [Concomitant]
     Active Substance: AMIKACIN
     Indication: Meningitis enteroviral
     Dosage: UNK
  6. AMIKACIN [Concomitant]
     Active Substance: AMIKACIN
     Dosage: UNK
     Route: 042
  7. AMIKACIN [Concomitant]
     Active Substance: AMIKACIN
     Dosage: UNK
     Route: 042
  8. AMIKACIN [Concomitant]
     Active Substance: AMIKACIN
     Dosage: UNK
  9. CEFOTAXIME SODIUM [Concomitant]
     Active Substance: CEFOTAXIME SODIUM
     Indication: Meningitis enteroviral
     Dosage: 297 MILLIGRAM/KILOGRAM, QD
     Dates: start: 20250808, end: 20250808
  10. CEFOTAXIME SODIUM [Concomitant]
     Active Substance: CEFOTAXIME SODIUM
     Dosage: 297 MILLIGRAM/KILOGRAM, QD
     Dates: start: 20250808, end: 20250808
  11. CEFOTAXIME SODIUM [Concomitant]
     Active Substance: CEFOTAXIME SODIUM
     Dosage: 297 MILLIGRAM/KILOGRAM, QD
     Route: 042
     Dates: start: 20250808, end: 20250808
  12. CEFOTAXIME SODIUM [Concomitant]
     Active Substance: CEFOTAXIME SODIUM
     Dosage: 297 MILLIGRAM/KILOGRAM, QD
     Route: 042
     Dates: start: 20250808, end: 20250808
  13. CEFOTAXIME SODIUM [Concomitant]
     Active Substance: CEFOTAXIME SODIUM
     Dosage: 450 MILLIGRAM/KILOGRAM, QD
     Dates: start: 20250809, end: 20250809
  14. CEFOTAXIME SODIUM [Concomitant]
     Active Substance: CEFOTAXIME SODIUM
     Dosage: 450 MILLIGRAM/KILOGRAM, QD
     Dates: start: 20250809, end: 20250809
  15. CEFOTAXIME SODIUM [Concomitant]
     Active Substance: CEFOTAXIME SODIUM
     Dosage: 450 MILLIGRAM/KILOGRAM, QD
     Route: 042
     Dates: start: 20250809, end: 20250809
  16. CEFOTAXIME SODIUM [Concomitant]
     Active Substance: CEFOTAXIME SODIUM
     Dosage: 450 MILLIGRAM/KILOGRAM, QD
     Route: 042
     Dates: start: 20250809, end: 20250809
  17. CEFOTAXIME SODIUM [Concomitant]
     Active Substance: CEFOTAXIME SODIUM
     Dosage: 150 MILLIGRAM/KILOGRAM, QD
     Dates: start: 20250810, end: 20250810
  18. CEFOTAXIME SODIUM [Concomitant]
     Active Substance: CEFOTAXIME SODIUM
     Dosage: 150 MILLIGRAM/KILOGRAM, QD
     Route: 042
     Dates: start: 20250810, end: 20250810
  19. CEFOTAXIME SODIUM [Concomitant]
     Active Substance: CEFOTAXIME SODIUM
     Dosage: 150 MILLIGRAM/KILOGRAM, QD
     Dates: start: 20250810, end: 20250810
  20. CEFOTAXIME SODIUM [Concomitant]
     Active Substance: CEFOTAXIME SODIUM
     Dosage: 150 MILLIGRAM/KILOGRAM, QD
     Route: 042
     Dates: start: 20250810, end: 20250810

REACTIONS (3)
  - Prothrombin time ratio decreased [Recovered/Resolved]
  - Drug level increased [Recovered/Resolved]
  - Accidental overdose [Recovered/Resolved]

NARRATIVE: CASE EVENT DATE: 20250809
